FAERS Safety Report 6787504-1 (Version None)
Quarter: 2010Q2

REPORT INFORMATION
  Report Type: 
  Country: None (occurrence: None)
  Receive Date: 20100623
  Receipt Date: 20070705
  Transmission Date: 20101027
  Serious: No
  Sender: FDA-Public Use
  Company Number: US-PFIZER INC-2007035636

PATIENT
  Sex: Female
  Weight: 66.68 kg

DRUGS (11)
  1. DEPO-PROVERA SUSPENSION/INJ [Suspect]
     Indication: CONTRACEPTION
     Dates: start: 20050101, end: 20070101
  2. PREVACID [Concomitant]
  3. DILANTIN [Concomitant]
  4. OSCAL [Concomitant]
  5. REMERON [Concomitant]
  6. TEGRETOL [Concomitant]
  7. TOPAMAX [Concomitant]
  8. SEROQUEL [Concomitant]
  9. FOLIC ACID [Concomitant]
  10. LYRICA [Concomitant]
  11. CELEXA [Concomitant]

REACTIONS (1)
  - METRORRHAGIA [None]
